FAERS Safety Report 17805563 (Version 1)
Quarter: 2020Q2

REPORT INFORMATION
  Report Type: Spontaneous
  Country: US (occurrence: US)
  Receive Date: 20200519
  Receipt Date: 20200519
  Transmission Date: 20200714
  Serious: No
  Sender: FDA-Public Use
  Company Number: US-009507513-2005USA002511

PATIENT
  Age: 69 Year
  Sex: Female

DRUGS (4)
  1. CIPROFLOXACIN. [Concomitant]
     Active Substance: CIPROFLOXACIN
     Indication: ESCHERICHIA INFECTION
     Dosage: 500 MILLIGRAM, QD
     Route: 048
     Dates: start: 201204
  2. INVANZ [Suspect]
     Active Substance: ERTAPENEM SODIUM
     Indication: ESCHERICHIA INFECTION
     Dosage: 1000 MILLIGRAMS LOADING DOSE
     Route: 042
     Dates: start: 201204
  3. CIPROFLOXACIN. [Concomitant]
     Active Substance: CIPROFLOXACIN
     Indication: BACTERIAL DISEASE CARRIER
  4. INVANZ [Suspect]
     Active Substance: ERTAPENEM SODIUM
     Dosage: 500 MILLIGRAM AFTER EACH SUBSEQUENT DIALYSIS
     Route: 042
     Dates: start: 201204

REACTIONS (2)
  - Inappropriate schedule of product administration [Unknown]
  - Product use issue [Unknown]

NARRATIVE: CASE EVENT DATE: 201204
